FAERS Safety Report 24385131 (Version 1)
Quarter: 2024Q3

REPORT INFORMATION
  Report Type: Spontaneous
  Country: US (occurrence: None)
  Receive Date: 20240930
  Receipt Date: 20240930
  Transmission Date: 20241017
  Serious: Yes (Other)
  Sender: Public
  Company Number: None

PATIENT
  Age: 62 Year
  Sex: Male
  Weight: 58.97 kg

DRUGS (1)
  1. CABENUVA [Suspect]
     Active Substance: CABOTEGRAVIR\RILPIVIRINE
     Indication: HIV test positive
     Dosage: 6 MG ONCE EVEY 2 MOS INTRAMUSCULAR ?
     Route: 030
     Dates: start: 20230828

REACTIONS (1)
  - Blood HIV RNA increased [None]

NARRATIVE: CASE EVENT DATE: 20240906
